FAERS Safety Report 7267646-7 (Version None)
Quarter: 2011Q1

REPORT INFORMATION
  Report Type: 
  Country: None (occurrence: None)
  Receive Date: 20110201
  Receipt Date: 20110126
  Transmission Date: 20110831
  Serious: Yes (Hospitalization)
  Sender: FDA-Public Use
  Company Number: US-ABBOTT-11P-163-0701299-00

PATIENT

DRUGS (10)
  1. FISH OIL [Concomitant]
     Indication: MEDICAL DIET
  2. IMURAN [Concomitant]
     Indication: CROHN'S DISEASE
  3. VALIUM [Concomitant]
     Indication: INSOMNIA
  4. TOPROL-XL [Concomitant]
     Indication: HYPERTENSION
  5. BENICAR [Concomitant]
     Indication: HYPERTENSION
  6. HUMIRA [Suspect]
     Indication: CROHN'S DISEASE
     Dates: start: 20090101
  7. ASPIRIN [Concomitant]
     Indication: CARDIAC DISORDER
  8. RATADINE [Concomitant]
     Indication: GASTROOESOPHAGEAL REFLUX DISEASE
  9. VITAMIN D [Concomitant]
     Indication: VITAMIN SUPPLEMENTATION
  10. CALCIUM [Concomitant]
     Indication: MINERAL SUPPLEMENTATION

REACTIONS (6)
  - VOMITING [None]
  - EXPIRED DRUG ADMINISTERED [None]
  - PATELLA FRACTURE [None]
  - FALL [None]
  - INTESTINAL OBSTRUCTION [None]
  - PAIN [None]
